FAERS Safety Report 16053495 (Version 2)
Quarter: 2019Q2

REPORT INFORMATION
  Report Type: Spontaneous
  Country: US (occurrence: US)
  Receive Date: 20190308
  Receipt Date: 20190429
  Transmission Date: 20190711
  Serious: No
  Sender: FDA-Public Use
  Company Number: US-PFIZER INC-2019089357

PATIENT
  Sex: Female

DRUGS (2)
  1. LYRICA [Suspect]
     Active Substance: PREGABALIN
     Indication: NEUROPATHY PERIPHERAL
     Dosage: 50 MG, 1X/DAY (AT BEDTIME)
  2. LYRICA [Suspect]
     Active Substance: PREGABALIN
     Indication: INSOMNIA

REACTIONS (6)
  - Paraesthesia [Recovered/Resolved]
  - Product dose omission [Unknown]
  - Muscle twitching [Not Recovered/Not Resolved]
  - Viral infection [Unknown]
  - Drug ineffective [Unknown]
  - Malaise [Unknown]
